FAERS Safety Report 7299569-1 (Version None)
Quarter: 2011Q1

REPORT INFORMATION
  Report Type: 
  Country: None (occurrence: None)
  Receive Date: 20110217
  Receipt Date: 20110210
  Transmission Date: 20110831
  Serious: Yes (Death, Other)
  Sender: FDA-Public Use
  Company Number: ES-ROXANE LABORATORIES, INC.-2011-RO-00166RO

PATIENT
  Age: 68 Year
  Sex: Male

DRUGS (5)
  1. AZATHIOPRINE [Suspect]
     Indication: IMMUNOSUPPRESSANT DRUG THERAPY
  2. CYCLOPHOSPHAMIDE [Suspect]
     Indication: IMMUNOSUPPRESSANT DRUG THERAPY
  3. CISPLATIN [Suspect]
     Indication: NEUROENDOCRINE CARCINOMA OF THE SKIN
  4. ETOPOSIDE [Suspect]
     Indication: NEUROENDOCRINE CARCINOMA OF THE SKIN
  5. PREDNISONE [Suspect]
     Indication: IMMUNOSUPPRESSANT DRUG THERAPY

REACTIONS (6)
  - RENAL IMPAIRMENT [None]
  - SQUAMOUS CELL CARCINOMA [None]
  - THROMBOCYTOPENIA [None]
  - BRONCHOPNEUMONIA [None]
  - ACUTE RESPIRATORY FAILURE [None]
  - NEUROENDOCRINE CARCINOMA OF THE SKIN [None]
